FAERS Safety Report 7656967-1 (Version None)
Quarter: 2011Q3

REPORT INFORMATION
  Report Type: 
  Country: None (occurrence: None)
  Receive Date: 20110804
  Receipt Date: 20110728
  Transmission Date: 20111222
  Serious: Yes (Other)
  Sender: FDA-Public Use
  Company Number: CA-PFIZER INC-2011073869

PATIENT
  Age: 26 Year
  Sex: Male
  Weight: 100 kg

DRUGS (6)
  1. FISH OIL [Concomitant]
     Dosage: UNK
  2. VEGA [Concomitant]
     Dosage: UNK
  3. ZIPRASIDONE HYDROCHLORIDE [Suspect]
     Indication: PSYCHOTIC DISORDER
     Dosage: 80 MG UNK
     Dates: start: 20100101
  4. ZOPICLONE [Concomitant]
     Indication: SLEEP DISORDER
     Dosage: UNK
  5. ZIPRASIDONE HYDROCHLORIDE [Suspect]
     Dosage: 60 MG UNK
  6. OLANZAPINE [Concomitant]
     Dosage: UNK

REACTIONS (10)
  - PARAESTHESIA [None]
  - GLOSSODYNIA [None]
  - BURNING SENSATION [None]
  - ORAL FUNGAL INFECTION [None]
  - PARANOIA [None]
  - TONGUE DISCOLOURATION [None]
  - TREATMENT NONCOMPLIANCE [None]
  - DRUG INEFFECTIVE [None]
  - MENTAL IMPAIRMENT [None]
  - VISION BLURRED [None]
